FAERS Safety Report 11765966 (Version 1)
Quarter: 2015Q4

REPORT INFORMATION
  Report Type: Spontaneous
  Country: SE (occurrence: SE)
  Receive Date: 20151122
  Receipt Date: 20151122
  Transmission Date: 20160304
  Serious: Yes (Other)
  Sender: FDA-Public Use
  Company Number: PHHY2015SE150060

PATIENT
  Sex: Male

DRUGS (1)
  1. RITALIN [Suspect]
     Active Substance: METHYLPHENIDATE HYDROCHLORIDE
     Indication: PRODUCT USED FOR UNKNOWN INDICATION
     Dosage: UNK
     Route: 065

REACTIONS (9)
  - Dry mouth [Unknown]
  - Vision blurred [Unknown]
  - Muscle spasms [Unknown]
  - Heart rate increased [Unknown]
  - Fatigue [Unknown]
  - Seizure [Unknown]
  - Arthralgia [Unknown]
  - Eye inflammation [Unknown]
  - Eye pain [Unknown]
